FAERS Safety Report 11865425 (Version 1)
Quarter: 2015Q4

REPORT INFORMATION
  Report Type: Spontaneous
  Country: ES (occurrence: ES)
  Receive Date: 20151223
  Receipt Date: 20151223
  Transmission Date: 20160305
  Serious: Yes (Other)
  Sender: FDA-Public Use
  Company Number: PHHY2015ES166302

PATIENT
  Age: 76 Year
  Sex: Female

DRUGS (2)
  1. LEVODOPA/CARBIDOPA [Concomitant]
     Active Substance: CARBIDOPA\LEVODOPA
     Indication: PARKINSON^S DISEASE
     Route: 065
  2. THIORIDAZINE [Suspect]
     Active Substance: THIORIDAZINE
     Indication: DEMENTIA
     Dosage: 70 MG, UNK
     Route: 048

REACTIONS (1)
  - Hepatitis [Recovering/Resolving]
